FAERS Safety Report 8558420-X (Version None)
Quarter: 2012Q3

REPORT INFORMATION
  Report Type: 
  Country: None (occurrence: None)
  Receive Date: 20120801
  Receipt Date: 20120713
  Transmission Date: 20120928
  Serious: No
  Sender: FDA-Public Use
  Company Number: US-BAYER-2012-071180

PATIENT
  Age: 92 Year
  Sex: Female
  Weight: 49.887 kg

DRUGS (2)
  1. ALEVE (CAPLET) [Suspect]
     Indication: ARTHRITIS
     Dosage: 3 DF, UNK
     Route: 048
     Dates: start: 20120601
  2. AMLODIPINE [Concomitant]

REACTIONS (1)
  - ARTHRITIS [None]
